FAERS Safety Report 5839352-4 (Version None)
Quarter: 2008Q3

REPORT INFORMATION
  Report Type: 
  Country: None (occurrence: None)
  Receive Date: 20080806
  Receipt Date: 20080728
  Transmission Date: 20090109
  Serious: Yes (Life-Threatening)
  Sender: FDA-Public Use
  Company Number: 002988

PATIENT
  Age: 42 Year
  Sex: Male

DRUGS (6)
  1. BUSULFEX [Suspect]
     Indication: STEM CELL TRANSPLANT
     Dosage: 20 ML, INTRAVENOUS
     Route: 042
     Dates: start: 20070227, end: 20070303
  2. FLUDARABINE PHOSPHATE [Concomitant]
  3. VALPROATE SODIUM [Concomitant]
  4. NARTOGRASTIM (NARTOGRASTIM) [Concomitant]
  5. METHOTREXATE [Concomitant]
  6. CYCLOSPORINE [Concomitant]

REACTIONS (11)
  - ACUTE GRAFT VERSUS HOST DISEASE [None]
  - BONE MARROW TRANSPLANT REJECTION [None]
  - CYTOMEGALOVIRUS VIRAEMIA [None]
  - DIARRHOEA [None]
  - FOLLICULITIS [None]
  - HEPATIC FUNCTION ABNORMAL [None]
  - HYPERAMYLASAEMIA [None]
  - MALAISE [None]
  - STAPHYLOCOCCAL BACTERAEMIA [None]
  - STAPHYLOCOCCAL SEPSIS [None]
  - STOMATITIS [None]
